FAERS Safety Report 7424165-2 (Version None)
Quarter: 2011Q2

REPORT INFORMATION
  Report Type: 
  Country: None (occurrence: None)
  Receive Date: 20110419
  Receipt Date: 20110411
  Transmission Date: 20111010
  Serious: Yes (Death, Hospitalization)
  Sender: FDA-Public Use
  Company Number: TR-MERCK-1104TUR00002

PATIENT
  Age: 17 Year
  Sex: Male

DRUGS (1)
  1. PRIMAXIN [Suspect]
     Indication: AEROMONA INFECTION
     Route: 041

REACTIONS (5)
  - PYREXIA [None]
  - DRUG INEFFECTIVE [None]
  - HYPOXIA [None]
  - SEPSIS [None]
  - GENERAL PHYSICAL HEALTH DETERIORATION [None]
